FAERS Safety Report 20890264 (Version 3)
Quarter: 2022Q3

REPORT INFORMATION
  Report Type: Other
  Country: US (occurrence: None)
  Receive Date: 20220530
  Receipt Date: 20220705
  Transmission Date: 20221027
  Serious: Yes (Other)
  Sender: FDA-Public Use
  Company Number: US-ROCHE-3066311

PATIENT
  Age: 62 Year
  Sex: Female
  Weight: 72.640 kg

DRUGS (3)
  1. OCREVUS [Suspect]
     Active Substance: OCRELIZUMAB
     Indication: Relapsing-remitting multiple sclerosis
     Dosage: (PRESCRIBED AS INFUSE 300 MG DRIP ON DAY 1 AND DAY 14 THEN 600 MG EVERY 6 MONTHS
     Route: 042
     Dates: start: 202011
  2. GLATIRAMER ACETATE [Concomitant]
     Active Substance: GLATIRAMER ACETATE
  3. TOPIRAMATE [Concomitant]
     Active Substance: TOPIRAMATE

REACTIONS (5)
  - Lower limb fracture [Recovering/Resolving]
  - Urinary tract infection [Recovered/Resolved]
  - Asthenia [Recovering/Resolving]
  - Dysgraphia [Not Recovered/Not Resolved]
  - Malaise [Unknown]

NARRATIVE: CASE EVENT DATE: 20211201
